FAERS Safety Report 7909367-0 (Version None)
Quarter: 2011Q4

REPORT INFORMATION
  Report Type: 
  Country: None (occurrence: None)
  Receive Date: 20111111
  Receipt Date: 20111109
  Transmission Date: 20120403
  Serious: No
  Sender: FDA-Public Use
  Company Number: US-PFIZER INC-2011215217

PATIENT
  Sex: Female

DRUGS (1)
  1. TRI-LEVLEN 28 [Suspect]

REACTIONS (3)
  - IRRITABILITY [None]
  - FEELING ABNORMAL [None]
  - THINKING ABNORMAL [None]
